FAERS Safety Report 18591263 (Version 2)
Quarter: 2021Q1

REPORT INFORMATION
  Report Type: Report from Study
  Country: JP (occurrence: JP)
  Receive Date: 20201208
  Receipt Date: 20210107
  Transmission Date: 20210419
  Serious: Yes (Other)
  Sender: FDA-Public Use
  Company Number: JP-JNJFOC-A-CH2018-184259

PATIENT
  Age: 4 Year
  Sex: Female
  Weight: 13.3 kg

DRUGS (18)
  1. UPTRAVI [Suspect]
     Active Substance: SELEXIPAG
     Route: 048
     Dates: start: 20180825, end: 20180921
  2. OPSUMIT [Suspect]
     Active Substance: MACITENTAN
     Dosage: 2 MG, QD
     Route: 048
     Dates: start: 20160715, end: 20160812
  3. UPTRAVI [Suspect]
     Active Substance: SELEXIPAG
     Dosage: 0.75 DF, BID
     Route: 048
     Dates: start: 20180302, end: 20180330
  4. UPTRAVI [Suspect]
     Active Substance: SELEXIPAG
     Dosage: 1 DF, BID
     Route: 048
     Dates: start: 20180330, end: 20180727
  5. UPTRAVI [Suspect]
     Active Substance: SELEXIPAG
     Route: 048
     Dates: start: 20180922, end: 20181214
  6. MAGLAX [Concomitant]
     Active Substance: MAGNESIUM OXIDE
     Indication: CONSTIPATION
     Dosage: 0.5 G, QD
     Dates: end: 20180510
  7. OPSUMIT [Suspect]
     Active Substance: MACITENTAN
     Dosage: 1 MG, QD
     Route: 048
     Dates: start: 20180106, end: 20180511
  8. MAGNESIUM OXIDE. [Concomitant]
     Active Substance: MAGNESIUM OXIDE
     Indication: CONSTIPATION
     Dates: start: 20171006, end: 20171215
  9. OPSUMIT [Suspect]
     Active Substance: MACITENTAN
     Route: 048
     Dates: start: 20180512
  10. UPTRAVI [Suspect]
     Active Substance: SELEXIPAG
     Route: 048
     Dates: start: 20181215, end: 20190927
  11. ADCIRCA [Concomitant]
     Active Substance: TADALAFIL
     Indication: PULMONARY ARTERIAL HYPERTENSION
     Dosage: 24 MG, QD
     Dates: start: 20160617
  12. OPSUMIT [Suspect]
     Active Substance: MACITENTAN
     Indication: PULMONARY ARTERIAL HYPERTENSION
     Dosage: 1 MG, QD
     Route: 048
     Dates: start: 20160617, end: 20160715
  13. UPTRAVI [Suspect]
     Active Substance: SELEXIPAG
     Dosage: 0.375 DF, BID
     Route: 048
     Dates: start: 20180105, end: 20180302
  14. UPTRAVI [Suspect]
     Active Substance: SELEXIPAG
     Route: 048
     Dates: start: 20180728, end: 20180824
  15. DORNER [Concomitant]
     Active Substance: BERAPROST SODIUM
     Indication: PULMONARY ARTERIAL HYPERTENSION
  16. OPSUMIT [Suspect]
     Active Substance: MACITENTAN
     Dosage: 2.5 MG, QD
     Route: 048
     Dates: start: 20160812, end: 20180105
  17. UPTRAVI [Suspect]
     Active Substance: SELEXIPAG
     Indication: PULMONARY ARTERIAL HYPERTENSION
     Dosage: 0.25 DF, BID
     Route: 048
     Dates: start: 20171215, end: 20180105
  18. UPTRAVI [Suspect]
     Active Substance: SELEXIPAG
     Route: 048
     Dates: start: 20190928

REACTIONS (4)
  - Off label use [Unknown]
  - Product use issue [Unknown]
  - Platelet count decreased [Recovered/Resolved]
  - Anaemia [Recovered/Resolved]

NARRATIVE: CASE EVENT DATE: 20161007
